FAERS Safety Report 21317080 (Version 1)
Quarter: 2022Q3

REPORT INFORMATION
  Report Type: Spontaneous
  Country: US (occurrence: US)
  Receive Date: 20220911
  Receipt Date: 20220911
  Transmission Date: 20221027
  Serious: No
  Sender: FDA-Public Use
  Company Number: US-SA-SAC20220822000053

PATIENT
  Sex: Female

DRUGS (11)
  1. DUPIXENT [Suspect]
     Active Substance: DUPILUMAB
     Indication: Dermatitis atopic
     Dosage: 300 MG/2ML,QOW
     Route: 058
     Dates: start: 20201203
  2. AZITHROMYCIN [Concomitant]
     Active Substance: AZITHROMYCIN
  3. DICLOFENAC [Concomitant]
     Active Substance: DICLOFENAC
  4. FLUOCINONIDE [Concomitant]
     Active Substance: FLUOCINONIDE
  5. BETAMETH DIPROPIONATE [Concomitant]
  6. GEMFIBROZIL [Concomitant]
     Active Substance: GEMFIBROZIL
  7. IBUPROFEN [Concomitant]
     Active Substance: IBUPROFEN
  8. PROMETHAZINE [Concomitant]
     Active Substance: PROMETHAZINE HYDROCHLORIDE
  9. TACROLIMUS [Concomitant]
     Active Substance: TACROLIMUS
  10. DEXAMETHASONE [Concomitant]
     Active Substance: DEXAMETHASONE
  11. METHYLPREDNISOLONE [Concomitant]
     Active Substance: METHYLPREDNISOLONE

REACTIONS (3)
  - Infection [Not Recovered/Not Resolved]
  - Injection site rash [Not Recovered/Not Resolved]
  - Skin burning sensation [Not Recovered/Not Resolved]
